FAERS Safety Report 8839214 (Version 1)
Quarter: 2012Q4

REPORT INFORMATION
  Report Type: 
  Country: US (occurrence: US)
  Receive Date: 20121015
  Receipt Date: 20121015
  Transmission Date: 20130627
  Serious: Yes (Other)
  Sender: FDA-Public Use
  Company Number: US-SANOFI-AVENTIS-2012SA072292

PATIENT
  Age: 78 Year
  Sex: Male

DRUGS (1)
  1. LANTUS [Suspect]
     Dosage: Dose:10 unit(s)
     Route: 058
     Dates: start: 201210

REACTIONS (2)
  - Fall [Unknown]
  - Upper limb fracture [Unknown]
